FAERS Safety Report 8026440-X (Version None)
Quarter: 2012Q1

REPORT INFORMATION
  Report Type: 
  Country: None (occurrence: None)
  Receive Date: 20120105
  Receipt Date: 20111227
  Transmission Date: 20120608
  Serious: Yes (Other)
  Sender: FDA-Public Use
  Company Number: US-ALLERGAN-1116819US

PATIENT
  Sex: Female

DRUGS (3)
  1. PRED FORTE [Suspect]
     Indication: CORNEAL TRANSPLANT
     Dosage: 1 GTT, TID
     Route: 047
     Dates: start: 20100101
  2. LASIX [Concomitant]
     Indication: RHEUMATOID ARTHRITIS
     Route: 048
  3. PREDNISONE TAB [Suspect]
     Indication: CORNEAL TRANSPLANT
     Dosage: 15 MG, QD
     Route: 048
     Dates: start: 20100101

REACTIONS (5)
  - VISUAL ACUITY REDUCED [None]
  - SWELLING [None]
  - SECRETION DISCHARGE [None]
  - SWELLING FACE [None]
  - CATARACT [None]
